FAERS Safety Report 8346688-4 (Version None)
Quarter: 2012Q2

REPORT INFORMATION
  Report Type: 
  Country: None (occurrence: None)
  Receive Date: 20120509
  Receipt Date: 20120501
  Transmission Date: 20120825
  Serious: Yes (Hospitalization)
  Sender: FDA-Public Use
  Company Number: US-UCBSA-056559

PATIENT
  Age: 47 Year
  Sex: Male

DRUGS (5)
  1. KEPPRA XR [Suspect]
     Dosage: AT BEDTIME
  2. VIMPAT [Suspect]
     Dates: start: 20120301, end: 20120101
  3. VIMPAT [Suspect]
     Dosage: TITRATED UP
     Dates: start: 20120101
  4. ZONEGRAN [Concomitant]
     Dosage: 400 MG
  5. TOPROL-XL [Concomitant]
     Dosage: 25 MG

REACTIONS (1)
  - ATRIAL FIBRILLATION [None]
